FAERS Safety Report 9775350 (Version 1)
Quarter: 2013Q4

REPORT INFORMATION
  Report Type: Spontaneous
  Country: FR (occurrence: FR)
  Receive Date: 20131220
  Receipt Date: 20131220
  Transmission Date: 20140711
  Serious: Yes (Hospitalization)
  Sender: FDA-Public Use
  Company Number: FR-PFIZER INC-2013361829

PATIENT
  Age: 45 Year
  Sex: Male
  Weight: 79 kg

DRUGS (11)
  1. RAPAMUNE [Suspect]
     Dosage: 2 MG, 1X/DAY
     Route: 048
     Dates: start: 20130814
  2. PHOSPHONEUROS [Concomitant]
     Dosage: UNK
     Route: 048
     Dates: start: 20130916
  3. MEGAMAG [Concomitant]
     Dosage: UNK
     Route: 048
     Dates: start: 20130916
  4. PRIMPERAN [Concomitant]
     Dosage: 10 MG, 1X/DAY (30 MG MAXIMUM DAILY )
     Route: 048
     Dates: start: 20130916
  5. CONTRAMAL [Concomitant]
     Dosage: 60 MG, DAILY (360 MG MAXIMUM DAILY)
     Route: 042
     Dates: start: 20130916
  6. BEPANTHEN [Concomitant]
     Dosage: UNK
     Route: 003
     Dates: start: 20130916
  7. LEDERFOLIN [Concomitant]
     Dosage: UNK
     Route: 048
     Dates: start: 20130916
  8. ACTONEL [Concomitant]
     Route: 048
  9. INEXIUM /01479302/ [Concomitant]
     Dosage: UNK
     Dates: start: 20130916
  10. STILNOX [Concomitant]
     Dosage: UNK
     Dates: start: 20130916
  11. XANAX [Concomitant]
     Dosage: UNK
     Dates: start: 20130916

REACTIONS (1)
  - Peliosis hepatis [Recovering/Resolving]
